FAERS Safety Report 5306930-0 (Version None)
Quarter: 2007Q2

REPORT INFORMATION
  Report Type: 
  Country: None (occurrence: None)
  Receive Date: 20070425
  Receipt Date: 20070405
  Transmission Date: 20071010
  Serious: Yes (Other)
  Sender: FDA-Public Use
  Company Number: FR-BAYER-200610965BFR

PATIENT
  Age: 40 Year
  Sex: Male

DRUGS (1)
  1. ACARBOSE [Suspect]
     Indication: UNEVALUABLE EVENT
     Route: 048

REACTIONS (1)
  - TERATOSPERMIA [None]
